FAERS Safety Report 7418331-X (Version None)
Quarter: 2011Q2

REPORT INFORMATION
  Report Type: 
  Country: None (occurrence: None)
  Receive Date: 20110415
  Receipt Date: 20110413
  Transmission Date: 20111010
  Serious: Yes (Hospitalization, Congenital Anomaly)
  Sender: FDA-Public Use
  Company Number: A0912000A

PATIENT
  Sex: Male

DRUGS (1)
  1. PAXIL [Suspect]
     Route: 064
     Dates: start: 20030501, end: 20030901

REACTIONS (17)
  - CONGENITAL PULMONARY VALVE ATRESIA [None]
  - HYDRONEPHROSIS [None]
  - RIGHT AORTIC ARCH [None]
  - PATENT DUCTUS ARTERIOSUS [None]
  - PULMONARY ARTERY STENOSIS CONGENITAL [None]
  - ASPLENIA [None]
  - DRUG EXPOSURE DURING PREGNANCY [None]
  - INTESTINAL MALROTATION [None]
  - ATRIAL SEPTAL DEFECT [None]
  - CONGENITAL CARDIOVASCULAR ANOMALY [None]
  - DOUBLE OUTLET RIGHT VENTRICLE [None]
  - TRANSPOSITION OF THE GREAT VESSELS [None]
  - DEXTROCARDIA [None]
  - VENTRICULAR SEPTAL DEFECT [None]
  - ABDOMINAL TRANSPOSITION [None]
  - CARDIAC FAILURE CONGESTIVE [None]
  - PHIMOSIS [None]
